FAERS Safety Report 17274082 (Version 1)
Quarter: 2020Q1

REPORT INFORMATION
  Report Type: Spontaneous
  Country: FR (occurrence: FR)
  Receive Date: 20200115
  Receipt Date: 20200115
  Transmission Date: 20200409
  Serious: Yes (Other)
  Sender: FDA-Public Use
  Company Number: FR-MYLANLABS-2020M1004133

PATIENT
  Age: 78 Year
  Sex: Female
  Weight: 65 kg

DRUGS (4)
  1. TRUXIMA [Suspect]
     Active Substance: RITUXIMAB-ABBS
     Indication: DIFFUSE LARGE B-CELL LYMPHOMA STAGE IV
     Dosage: 620 MILLIGRAM, CYCLE
     Route: 041
     Dates: start: 20190625
  2. VINCRISTINE TEVA [Suspect]
     Active Substance: VINCRISTINE
     Indication: DIFFUSE LARGE B-CELL LYMPHOMA STAGE IV
     Dosage: 2 MILLIGRAM, CYCLE
     Route: 042
     Dates: start: 20190625, end: 20190910
  3. METHOTREXATE MYLAN [Suspect]
     Active Substance: METHOTREXATE SODIUM
     Indication: DIFFUSE LARGE B-CELL LYMPHOMA STAGE IV
     Dosage: 1500 MILLIGRAM/SQ. METER, CYCLE
     Route: 041
     Dates: start: 20190625
  4. NATULAN [Suspect]
     Active Substance: PROCARBAZINE HYDROCHLORIDE
     Indication: DIFFUSE LARGE B-CELL LYMPHOMA STAGE IV
     Dosage: 150 MILLIGRAM, CYCLE
     Route: 048
     Dates: start: 20190625

REACTIONS (1)
  - Paraesthesia [Not Recovered/Not Resolved]

NARRATIVE: CASE EVENT DATE: 201909
